FAERS Safety Report 22179762 (Version 2)
Quarter: 2023Q2

REPORT INFORMATION
  Report Type: Spontaneous
  Country: US (occurrence: US)
  Receive Date: 20230406
  Receipt Date: 20230411
  Transmission Date: 20230722
  Serious: Yes (Other)
  Sender: FDA-Public Use
  Company Number: US-Vifor (International) Inc.-VIT-2023-01950

PATIENT
  Age: 49 Year
  Sex: Female
  Weight: 90 kg

DRUGS (3)
  1. MIRCERA [Suspect]
     Active Substance: METHOXY POLYETHYLENE GLYCOL-EPOETIN BETA
     Indication: Nephrogenic anaemia
  2. MIRCERA [Suspect]
     Active Substance: METHOXY POLYETHYLENE GLYCOL-EPOETIN BETA
     Dosage: DOSE NUMBER:07, DOSE CATEGORY: DOSE 6-10
     Route: 042
     Dates: start: 20230207, end: 20230207
  3. CALCITRIOL [Concomitant]
     Active Substance: CALCITRIOL
     Route: 048

REACTIONS (5)
  - Drug hypersensitivity [Recovered/Resolved]
  - Back pain [Recovered/Resolved]
  - Tachycardia [Recovered/Resolved]
  - Hyperhidrosis [Recovered/Resolved]
  - Dyspnoea [Recovered/Resolved]

NARRATIVE: CASE EVENT DATE: 20230207
